FAERS Safety Report 9419223 (Version 1)
Quarter: 2013Q3

REPORT INFORMATION
  Report Type: Spontaneous
  Country: GB (occurrence: GB)
  Receive Date: 20130725
  Receipt Date: 20130725
  Transmission Date: 20140515
  Serious: Yes (Other)
  Sender: FDA-Public Use
  Company Number: GB-ASTRAZENECA-2013SE52727

PATIENT
  Sex: 0

DRUGS (1)
  1. EMLA [Suspect]
     Route: 061

REACTIONS (4)
  - Skin disorder [Unknown]
  - Skin disorder [Unknown]
  - Skin warm [Unknown]
  - Erythema [Unknown]
